FAERS Safety Report 19507281 (Version 1)
Quarter: 2021Q3

REPORT INFORMATION
  Report Type: Spontaneous
  Country: US (occurrence: US)
  Receive Date: 20210708
  Receipt Date: 20210708
  Transmission Date: 20211014
  Serious: Yes (Other)
  Sender: FDA-Public Use
  Company Number: US-JNJFOC-20210707933

PATIENT
  Age: 75 Year
  Sex: Male

DRUGS (3)
  1. ULTRAM [Suspect]
     Active Substance: TRAMADOL HYDROCHLORIDE
     Indication: PAIN
     Route: 048
  2. REMDESIVIR. [Interacting]
     Active Substance: REMDESIVIR
     Indication: COVID-19 PNEUMONIA
     Dosage: DAY 1
     Route: 065
  3. REMDESIVIR. [Interacting]
     Active Substance: REMDESIVIR
     Route: 065

REACTIONS (3)
  - Pain [Recovered/Resolved]
  - Drug interaction [Unknown]
  - Drug ineffective [Unknown]
